FAERS Safety Report 18029831 (Version 3)
Quarter: 2020Q4

REPORT INFORMATION
  Report Type: Spontaneous
  Country: US (occurrence: US)
  Receive Date: 20200715
  Receipt Date: 20201222
  Transmission Date: 20210113
  Serious: Yes (Hospitalization, Other)
  Sender: FDA-Public Use
  Company Number: US-PURDUE-USA-2020-0155478

PATIENT
  Sex: Female

DRUGS (9)
  1. HYDROCODONE BITARTRATE AND ACETAMINOPHEN [Suspect]
     Active Substance: ACETAMINOPHEN\HYDROCODONE BITARTRATE
     Indication: PRODUCT USED FOR UNKNOWN INDICATION
     Dosage: 10-325 MG
     Route: 048
  2. OXYCODONE HYDROCHLORIDE (SIMILAR TO NDA 22-272) [Suspect]
     Active Substance: OXYCODONE HYDROCHLORIDE
     Indication: PRODUCT USED FOR UNKNOWN INDICATION
     Dosage: 10 MG, UNK
     Route: 048
  3. OXYCONTIN [Suspect]
     Active Substance: OXYCODONE HYDROCHLORIDE
     Indication: PRODUCT USED FOR UNKNOWN INDICATION
     Dosage: 40 MG, TID
     Route: 048
  4. TRAMADOL. [Suspect]
     Active Substance: TRAMADOL
     Dosage: 50 MG, UNK
     Route: 065
  5. DILAUDID [Suspect]
     Active Substance: HYDROMORPHONE HYDROCHLORIDE
     Indication: PRODUCT USED FOR UNKNOWN INDICATION
     Dosage: 1 MG, Q3H PRN
     Route: 042
  6. HYDROMORPHONE HCL (SIMILAR TO 19-892) [Suspect]
     Active Substance: HYDROMORPHONE HYDROCHLORIDE
     Indication: PRODUCT USED FOR UNKNOWN INDICATION
     Dosage: UNK
     Route: 048
  7. TRAMADOL. [Suspect]
     Active Substance: TRAMADOL
     Indication: PRODUCT USED FOR UNKNOWN INDICATION
     Dosage: 100 MG, UNK
     Route: 065
  8. PREGABALIN. [Concomitant]
     Active Substance: PREGABALIN
     Indication: PRODUCT USED FOR UNKNOWN INDICATION
     Dosage: UNK
     Route: 065
  9. PREGABALIN. [Concomitant]
     Active Substance: PREGABALIN
     Dosage: 50 UNK, UNK
     Route: 065

REACTIONS (24)
  - Sepsis [Unknown]
  - Emotional distress [Unknown]
  - Psychological trauma [Unknown]
  - Fatigue [Unknown]
  - Surgery [Unknown]
  - Constipation [Unknown]
  - Adverse drug reaction [Unknown]
  - Scar [Unknown]
  - Social avoidant behaviour [Unknown]
  - Hospitalisation [Unknown]
  - Peritoneal abscess [Unknown]
  - Hyperaesthesia [Unknown]
  - Joint injury [Unknown]
  - Pain [Unknown]
  - General physical health deterioration [Unknown]
  - Anhedonia [Unknown]
  - Toxic shock syndrome [Unknown]
  - Drug dependence [Recovered/Resolved]
  - Large intestine perforation [Unknown]
  - Drug abuse [Unknown]
  - Septic shock [Unknown]
  - Pneumonia [Unknown]
  - Peritonitis [Unknown]
  - Abdominal pain [Unknown]
